FAERS Safety Report 16814202 (Version 1)
Quarter: 2019Q3

REPORT INFORMATION
  Report Type: Spontaneous
  Country: US (occurrence: US)
  Receive Date: 20190917
  Receipt Date: 20190917
  Transmission Date: 20191005
  Serious: No
  Sender: FDA-Public Use
  Company Number: US-ALLERGAN-1907555US

PATIENT
  Age: 72 Year
  Sex: Male

DRUGS (1)
  1. SUCRALFATE UNK [Suspect]
     Active Substance: SUCRALFATE
     Indication: PRODUCT USED FOR UNKNOWN INDICATION
     Dosage: ACTUAL: 1 G (ONE TABLET BEFORE MEALS AND AT BEDTIME)
     Route: 048
     Dates: start: 201803

REACTIONS (1)
  - Wrong technique in product usage process [Unknown]

NARRATIVE: CASE EVENT DATE: 201804
